FAERS Safety Report 18771582 (Version 3)
Quarter: 2021Q4

REPORT INFORMATION
  Report Type: Spontaneous
  Country: JP (occurrence: JP)
  Receive Date: 20210122
  Receipt Date: 20211022
  Transmission Date: 20220303
  Serious: Yes (Hospitalization, Other)
  Sender: FDA-Public Use
  Company Number: JP-KYOWAKIRIN-2019AKK019336

PATIENT
  Age: 73 Year
  Sex: Female

DRUGS (32)
  1. PEGFILGRASTIM [Suspect]
     Active Substance: PEGFILGRASTIM
     Indication: Colony stimulating factor therapy
     Dosage: 3.6 MILLIGRAM, QD (6 TIMES IN TOTAL)
     Route: 058
     Dates: start: 20190911, end: 20191120
  2. FLUOROURACIL [Concomitant]
     Active Substance: FLUOROURACIL
     Indication: Pancreatic carcinoma
     Dosage: 2000 MILLIGRAM
     Route: 041
  3. FLUOROURACIL [Concomitant]
     Active Substance: FLUOROURACIL
     Dosage: 216 MILLIGRAM
     Route: 040
  4. OXALIPLATIN [Concomitant]
     Active Substance: OXALIPLATIN
     Indication: Pancreatic carcinoma
     Dosage: 78 MILLIGRAM
     Route: 041
     Dates: start: 20190724, end: 20191218
  5. IRINOTECAN HYDROCHLORIDE [Concomitant]
     Active Substance: IRINOTECAN HYDROCHLORIDE
     Indication: Pancreatic carcinoma
     Dosage: 111 MILLIGRAM
     Route: 041
     Dates: start: 20190724, end: 20191218
  6. LEVOLEUCOVORIN CALCIUM [Concomitant]
     Active Substance: LEVOLEUCOVORIN CALCIUM
     Indication: Pancreatic carcinoma
     Dosage: 184 MILLIGRAM
     Route: 041
     Dates: start: 20190724, end: 20191218
  7. ADENINE [Concomitant]
     Active Substance: ADENINE
     Indication: Leukopenia
     Dosage: 10 MILLIGRAM, TID
     Route: 048
     Dates: start: 20180815
  8. ADENINE [Concomitant]
     Active Substance: ADENINE
     Dosage: 20 MG, TID AFTER EACH MEAL
     Route: 048
  9. FAMOTIDINE [Concomitant]
     Active Substance: FAMOTIDINE
     Indication: Gastric ulcer
     Dosage: 20 MILLIGRAM, BID, AFTER BREAKFAST AND DINNER
     Route: 048
     Dates: start: 20190109
  10. HERBALS [Concomitant]
     Active Substance: HERBALS
     Indication: Fatigue
     Dosage: 2.5 MILLIGRAM, TID, BEFORE EACH MEAL
     Route: 048
     Dates: start: 20190130
  11. MIYA-BM [Concomitant]
     Active Substance: CLOSTRIDIUM BUTYRICUM SPORES STRAIN M-55
     Indication: Diarrhoea
     Dosage: 1 GRAM, TID, AFTER EACH MEAL
     Route: 048
     Dates: start: 20190730
  12. EDOXABAN TOSYLATE [Concomitant]
     Active Substance: EDOXABAN TOSYLATE
     Indication: Subclavian vein thrombosis
     Dosage: 30 MILLIGRAM, QD
     Route: 048
     Dates: start: 20191009
  13. EDOXABAN TOSYLATE [Concomitant]
     Active Substance: EDOXABAN TOSYLATE
     Dosage: 60 MG, QD, AFTER BREAKFAST
     Route: 048
  14. FUROSEMIDE [Concomitant]
     Active Substance: FUROSEMIDE
     Indication: Oedema
     Dosage: 20 MILLIGRAM, QD, AFTER BREAKFAST
     Route: 048
     Dates: start: 20191007
  15. FLAGYL [Concomitant]
     Active Substance: METRONIDAZOLE\METRONIDAZOLE HYDROCHLORIDE
     Indication: Clostridium difficile colitis
     Dosage: 250 MILLIGRAM, QID
     Route: 048
     Dates: start: 20191126, end: 20191202
  16. DIETARY SUPPLEMENT\PROBIOTICS [Concomitant]
     Active Substance: DIETARY SUPPLEMENT\PROBIOTICS
     Indication: Enterocolitis
     Dosage: 1 GRAM, TID
     Route: 048
     Dates: start: 20191129, end: 20191205
  17. DIETARY SUPPLEMENT\PROBIOTICS [Concomitant]
     Active Substance: DIETARY SUPPLEMENT\PROBIOTICS
     Dosage: UNK
     Route: 065
  18. CEFTRIAXONE SODIUM [Concomitant]
     Active Substance: CEFTRIAXONE SODIUM
     Indication: Device related infection
     Dosage: 1 G, BID
     Route: 041
     Dates: start: 20191127, end: 20191201
  19. PIPERACILLIN SODIUM\TAZOBACTAM SODIUM [Concomitant]
     Active Substance: PIPERACILLIN SODIUM\TAZOBACTAM SODIUM
     Indication: Device related infection
     Dosage: 4.5 GRAM, BID
     Route: 041
     Dates: start: 20191130, end: 20191210
  20. DEXAMETHASONE SODIUM PHOSPHATE [Concomitant]
     Active Substance: DEXAMETHASONE SODIUM PHOSPHATE
     Indication: Product used for unknown indication
     Dosage: 9.9 MILLIGRAM, QD, (8 TIMES IN TOTAL)
     Route: 041
     Dates: start: 20190724, end: 20191218
  21. GRANISETRON HYDROCHLORIDE [Concomitant]
     Active Substance: GRANISETRON HYDROCHLORIDE
     Indication: Product used for unknown indication
     Dosage: 1 MILLIGRAM
     Route: 041
     Dates: start: 20190724, end: 20191218
  22. JANUVIA [Concomitant]
     Active Substance: SITAGLIPTIN PHOSPHATE
     Indication: Product used for unknown indication
     Dosage: 50 MILLIGRAM, QD, AFTER BREAKFAST
     Route: 048
  23. LEVOTHYROXINE [Concomitant]
     Active Substance: LEVOTHYROXINE
     Indication: Product used for unknown indication
     Dosage: 25 UG, QD, AFTER BREAKFAST
     Route: 048
  24. DECADRON [Concomitant]
     Active Substance: DEXAMETHASONE
     Indication: Product used for unknown indication
     Dosage: 8 MILLIGRAM, BID, AFTER BREAKFAST AND DINNER
     Route: 048
  25. EMEND [Concomitant]
     Active Substance: APREPITANT
     Indication: Product used for unknown indication
     Dosage: 125 MILLIGRAM, 1 HOUR BEFORE CHEMOTHERAPY
     Route: 048
  26. ISOTONIC SODIUM CHLORIDE SOLUTION [Concomitant]
     Active Substance: SODIUM CHLORIDE
     Indication: Product used for unknown indication
     Dosage: 200 MILLILITER
     Route: 041
  27. ISOTONIC SODIUM CHLORIDE SOLUTION [Concomitant]
     Active Substance: SODIUM CHLORIDE
     Dosage: 20 MILLILITER
     Route: 065
  28. ISOTONIC SODIUM CHLORIDE SOLUTION [Concomitant]
     Active Substance: SODIUM CHLORIDE
     Dosage: 50 MILLILITER
     Route: 065
  29. SOLDEM 3A [Concomitant]
     Active Substance: CARBOHYDRATES\POTASSIUM CHLORIDE\SODIUM CHLORIDE\SODIUM LACTATE
     Indication: Product used for unknown indication
     Dosage: 500 MILLILITER
     Route: 042
  30. CALCIUM CHLORIDE ANHYDROUS\POTASSIUM CHLORIDE\SODIUM CHLORIDE\SODIUM L [Concomitant]
     Active Substance: CALCIUM CHLORIDE ANHYDROUS\POTASSIUM CHLORIDE\SODIUM CHLORIDE\SODIUM LACTATE
     Indication: Product used for unknown indication
     Dosage: 500 MILLILITER
     Route: 041
  31. HUMULIN R [Concomitant]
     Active Substance: INSULIN HUMAN
     Indication: Product used for unknown indication
     Dosage: 200 MILLILITER
     Route: 065
  32. DEXTROSE [Concomitant]
     Active Substance: DEXTROSE
     Indication: Product used for unknown indication
     Dosage: 750 MILLILITER
     Route: 042

REACTIONS (8)
  - Subclavian vein thrombosis [Recovered/Resolved]
  - Aortitis [Recovered/Resolved]
  - Arteritis [Recovered/Resolved]
  - Gastroenteritis clostridial [Recovered/Resolved]
  - Enterocolitis [Recovered/Resolved]
  - Device related infection [Recovered/Resolved]
  - Oedema [Recovering/Resolving]
  - Diarrhoea [Recovered/Resolved]

NARRATIVE: CASE EVENT DATE: 20191007
